FAERS Safety Report 19817170 (Version 1)
Quarter: 2021Q3

REPORT INFORMATION
  Report Type: Spontaneous
  Country: US (occurrence: US)
  Receive Date: 20210910
  Receipt Date: 20210910
  Transmission Date: 20211014
  Serious: No
  Sender: FDA-Public Use
  Company Number: US-MYLANLABS-2021M1054475

PATIENT
  Sex: Female
  Weight: 61 kg

DRUGS (1)
  1. LEVONORGESTREL AND ETHINYL ESTRADIOL TABLETS, USP [Suspect]
     Active Substance: ETHINYL ESTRADIOL\LEVONORGESTREL
     Indication: AFFECTIVE DISORDER
     Dosage: QD(0.1/0.02/0.01 MG)
     Route: 048
     Dates: end: 20210818

REACTIONS (8)
  - Intrusive thoughts [Recovering/Resolving]
  - Depression [Recovering/Resolving]
  - Decreased appetite [Recovering/Resolving]
  - Sleep disorder [Recovering/Resolving]
  - Crying [Recovering/Resolving]
  - Drug ineffective for unapproved indication [Unknown]
  - Mood swings [Recovering/Resolving]
  - Anxiety [Recovering/Resolving]
